FAERS Safety Report 15584448 (Version 2)
Quarter: 2019Q3

REPORT INFORMATION
  Report Type: Report from Study
  Country: US (occurrence: US)
  Receive Date: 20181105
  Receipt Date: 20190925
  Transmission Date: 20191004
  Serious: Yes (Other)
  Sender: FDA-Public Use
  Company Number: US-SA-2018SA274864

PATIENT
  Age: 74 Year
  Sex: Male

DRUGS (2)
  1. INSULIN GLARGINE [Suspect]
     Active Substance: INSULIN GLARGINE
     Dosage: 31 UNK
     Route: 058
  2. INSULIN GLARGINE [Suspect]
     Active Substance: INSULIN GLARGINE
     Indication: TYPE 2 DIABETES MELLITUS
     Dosage: 37 U
     Route: 065
     Dates: start: 20150514

REACTIONS (9)
  - Injection site pain [Unknown]
  - Complication associated with device [Unknown]
  - Neoplasm malignant [Not Recovered/Not Resolved]
  - Ill-defined disorder [Not Recovered/Not Resolved]
  - Device operational issue [Unknown]
  - Malaise [Unknown]
  - Injection site swelling [Unknown]
  - Inability to afford medication [Unknown]
  - Incorrect dose administered [Unknown]
